FAERS Safety Report 8972449 (Version 2)
Quarter: 2013Q1

REPORT INFORMATION
  Report Type: Spontaneous
  Country: BR (occurrence: BR)
  Receive Date: 20121219
  Receipt Date: 20130131
  Transmission Date: 20140127
  Serious: Yes (Other)
  Sender: FDA-Public Use
  Company Number: BR-PFIZER INC-2012315196

PATIENT
  Age: 62 Year
  Sex: Female
  Weight: 64 kg

DRUGS (6)
  1. CELEBRA [Suspect]
     Indication: OSTEOARTHRITIS
     Dosage: 200 MG, ^AS NEEDED^, OR 200MG A DAY FOR 5 DAYS WHEN HAVING STRONGER PAINS
     Route: 048
     Dates: start: 2010
  2. CELEBRA [Suspect]
     Indication: ARTHRITIS
  3. CELEBRA [Suspect]
     Indication: OSTEOARTHRITIS
  4. ARTRODAR [Concomitant]
     Indication: PAIN
     Dosage: UNSPECIFIED DOSE, 1X/DAY FOR 6 MONTHS, PLUS PAUSES OF 2 MONTHS
     Dates: start: 2010
  5. ARTRODAR [Concomitant]
     Indication: MUSCULOSKELETAL DISCOMFORT
  6. DAFORIN [Concomitant]
     Indication: ANXIETY
     Dosage: UNSPECIFIED DOSE, ONCE A DAY
     Dates: start: 2009

REACTIONS (3)
  - Fall [Recovering/Resolving]
  - Fractured coccyx [Recovering/Resolving]
  - Spinal pain [Recovering/Resolving]
